FAERS Safety Report 16678840 (Version 1)
Quarter: 2019Q3

REPORT INFORMATION
  Report Type: Spontaneous
  Country: US (occurrence: US)
  Receive Date: 20190806
  Receipt Date: 20190806
  Transmission Date: 20191004
  Serious: Yes (Disabling, Other)
  Sender: FDA-Public Use
  Company Number: None

PATIENT
  Age: 43 Year
  Sex: Male
  Weight: 129.27 kg

DRUGS (2)
  1. VICTOZA [Suspect]
     Active Substance: LIRAGLUTIDE
     Indication: TYPE 2 DIABETES MELLITUS
     Route: 058
  2. LEVEMIR [Suspect]
     Active Substance: INSULIN DETEMIR

REACTIONS (4)
  - Device damage [None]
  - Device malfunction [None]
  - Therapy cessation [None]
  - Blood glucose increased [None]

NARRATIVE: CASE EVENT DATE: 20180101
